FAERS Safety Report 8780388 (Version 1)
Quarter: 2012Q4

REPORT INFORMATION
  Report Type: Spontaneous
  Country: US (occurrence: None)
  Receive Date: 20120905
  Receipt Date: 20120905
  Transmission Date: 20130627
  Serious: No
  Sender: FDA-Public Use
  Company Number: None

PATIENT
  Age: 45 Year
  Sex: Male

DRUGS (1)
  1. FELBAMATE [Suspect]
     Indication: EPILEPSY
     Dates: start: 20120822, end: 20120826

REACTIONS (4)
  - Abdominal pain [None]
  - Diarrhoea [None]
  - Amylase increased [None]
  - Lipase increased [None]
